FAERS Safety Report 8897835 (Version 1)
Quarter: 2012Q4

REPORT INFORMATION
  Report Type: 
  Country: US (occurrence: US)
  Receive Date: 20121108
  Receipt Date: 20121108
  Transmission Date: 20130627
  Serious: No
  Sender: FDA-Public Use
  Company Number: US-AMGEN-USASP2012031655

PATIENT
  Age: 68 Year
  Sex: Female
  Weight: 45.35 kg

DRUGS (9)
  1. ENBREL [Suspect]
     Indication: RHEUMATOID ARTHRITIS
     Dosage: 25 mg, 2 times/wk
     Route: 058
  2. COREG [Concomitant]
     Dosage: 12.5 mg, UNK
     Route: 048
  3. PLAQUENIL                          /00072602/ [Concomitant]
     Dosage: 200 mg, UNK
     Route: 048
  4. RELAFEN [Concomitant]
     Dosage: 750 mg, UNK
     Route: 048
  5. BENADRYL ALLERGY                   /00000402/ [Concomitant]
     Dosage: 25 mg, UNK
     Route: 048
  6. PREDNISONE [Concomitant]
     Dosage: 2.5 mg, UNK
     Route: 048
  7. LISINOPRIL [Concomitant]
     Dosage: 2.5 mg, UNK
     Route: 048
  8. SIMVASTATIN [Concomitant]
     Dosage: 40 mg, UNK
     Route: 048
  9. ACTONEL [Concomitant]
     Dosage: 35 mg, UNK
     Route: 048

REACTIONS (3)
  - Weight decreased [Unknown]
  - Injection site rash [Unknown]
  - Injection site pruritus [Unknown]
